FAERS Safety Report 13508160 (Version 3)
Quarter: 2017Q3

REPORT INFORMATION
  Report Type: Spontaneous
  Country: BR (occurrence: BR)
  Receive Date: 20170503
  Receipt Date: 20170711
  Transmission Date: 20171127
  Serious: Yes (Other)
  Sender: FDA-Public Use
  Company Number: BR-BEH-2017079910

PATIENT
  Age: 9 Year
  Sex: Female
  Weight: 26 kg

DRUGS (22)
  1. PRIVIGEN [Suspect]
     Active Substance: HUMAN IMMUNOGLOBULIN G
     Indication: PRODUCT USED FOR UNKNOWN INDICATION
     Dosage: UNK
     Route: 042
     Dates: start: 2015, end: 2016
  2. MELATONIN [Concomitant]
     Active Substance: MELATONIN
     Route: 065
  3. RIBOFLAVIN [Concomitant]
     Active Substance: RIBOFLAVIN
     Route: 065
  4. RISPERIDON [Concomitant]
     Active Substance: RISPERIDONE
     Route: 065
  5. COENZYME Q10 [Concomitant]
     Active Substance: UBIDECARENONE
     Route: 065
  6. SOLU-MEDROL [Concomitant]
     Active Substance: METHYLPREDNISOLONE SODIUM SUCCINATE
     Route: 065
  7. HIZENTRA [Suspect]
     Active Substance: HUMAN IMMUNOGLOBULIN G
     Dosage: 3 G, QW
     Route: 058
     Dates: start: 201704
  8. HIZENTRA [Suspect]
     Active Substance: HUMAN IMMUNOGLOBULIN G
     Dosage: UNK
     Route: 058
     Dates: start: 20170701
  9. GABAPENTIN. [Concomitant]
     Active Substance: GABAPENTIN
     Route: 065
  10. AMINO ACIDS [Concomitant]
     Active Substance: AMINO ACIDS
     Route: 065
  11. LIPIDS NOS W/PROTEINS NOS/VITAMINS NOS [Concomitant]
     Active Substance: AMINO ACIDS\SOYBEAN OIL\VITAMINS
     Route: 051
  12. DIFENIDRAMINA [Concomitant]
     Active Substance: DIPHENHYDRAMINE
     Route: 065
  13. HUMAN GROWTH HORMONE, RECOMBINANT [Concomitant]
     Active Substance: SOMATROPIN
  14. HIZENTRA [Suspect]
     Active Substance: HUMAN IMMUNOGLOBULIN G
     Indication: IMMUNODEFICIENCY COMMON VARIABLE
     Dosage: 4 G, QW
     Route: 058
  15. BACLOFEN. [Concomitant]
     Active Substance: BACLOFEN
     Route: 065
  16. INSULIN [Concomitant]
     Active Substance: INSULIN NOS
     Route: 065
  17. CYANOCOBALAMIN. [Concomitant]
     Active Substance: CYANOCOBALAMIN
     Route: 065
  18. FOLIC ACID. [Concomitant]
     Active Substance: FOLIC ACID
     Route: 065
  19. PANTOGAR                           /00630501/ [Concomitant]
     Route: 065
  20. CIPROFLOXACIN. [Concomitant]
     Active Substance: CIPROFLOXACIN
     Dosage: UNK, BID
     Route: 042
  21. KEPPRA [Concomitant]
     Active Substance: LEVETIRACETAM
     Route: 065
  22. SODIUM BENZOATE [Concomitant]
     Active Substance: SODIUM BENZOATE
     Route: 065

REACTIONS (25)
  - Hepatomegaly [Unknown]
  - Jaundice [Unknown]
  - Anaemia [Unknown]
  - Hypotension [Unknown]
  - Swelling [Unknown]
  - Subclavian vein thrombosis [Unknown]
  - Axillary vein thrombosis [Unknown]
  - Pyrexia [Unknown]
  - Swelling face [Unknown]
  - Infusion site bruising [Not Recovered/Not Resolved]
  - Ammonia increased [Unknown]
  - Vascular access site complication [Unknown]
  - Ill-defined disorder [Unknown]
  - Hepatic function abnormal [Unknown]
  - Oxygen saturation decreased [Unknown]
  - Vessel puncture site reaction [Unknown]
  - Haemoglobin decreased [Unknown]
  - Blood glucose increased [Unknown]
  - Thrombophlebitis superficial [Not Recovered/Not Resolved]
  - Pain [Unknown]
  - Headache [Unknown]
  - Heart rate decreased [Unknown]
  - Deep vein thrombosis [Unknown]
  - Abdominal distension [Unknown]
  - Hepatomegaly [Unknown]

NARRATIVE: CASE EVENT DATE: 2015
